FAERS Safety Report 14445562 (Version 3)
Quarter: 2018Q1

REPORT INFORMATION
  Report Type: Spontaneous
  Country: US (occurrence: US)
  Receive Date: 20180126
  Receipt Date: 20180321
  Transmission Date: 20180509
  Serious: Yes (Death, Hospitalization, Other)
  Sender: FDA-Public Use
  Company Number: US-KITE, A GILEAD COMPANY-2040845

PATIENT
  Age: 71 Year
  Sex: Female
  Weight: 92 kg

DRUGS (2)
  1. YESCARTA [Suspect]
     Active Substance: AXICABTAGENE CILOLEUCEL
     Indication: DIFFUSE LARGE B-CELL LYMPHOMA
     Route: 042
     Dates: start: 20171211, end: 20171211
  2. CORTICOSTEROIDS [Suspect]
     Active Substance: CORTICOSTEROID NOS

REACTIONS (7)
  - Blood pressure fluctuation [Unknown]
  - Neurological symptom [Unknown]
  - Confusional state [Unknown]
  - Pyrexia [Unknown]
  - Systemic candida [Fatal]
  - Acute kidney injury [Unknown]
  - Multiple organ dysfunction syndrome [Unknown]

NARRATIVE: CASE EVENT DATE: 20171214
